FAERS Safety Report 10515890 (Version 1)
Quarter: 2014Q3

REPORT INFORMATION
  Report Type: Spontaneous
  Country: US (occurrence: None)
  Receive Date: 20140926
  Receipt Date: 20140926
  Transmission Date: 20150326
  Serious: No
  Sender: FDA-Public Use
  Company Number: 1000070270

PATIENT
  Age: 77 Year
  Sex: Female

DRUGS (3)
  1. CRESTOR(ROSUVASTATIN CALCIUM )(ROSUVASTATIN CALCIUM) [Concomitant]
  2. LINZESS [Suspect]
     Active Substance: LINACLOTIDE
     Indication: IRRITABLE BOWEL SYNDROME
     Route: 048
     Dates: start: 2014, end: 2014
  3. LINZESS [Suspect]
     Active Substance: LINACLOTIDE
     Indication: IRRITABLE BOWEL SYNDROME
     Route: 048
     Dates: start: 20140825

REACTIONS (5)
  - Diarrhoea [None]
  - Abdominal distension [None]
  - Flatulence [None]
  - Nausea [None]
  - Off label use [None]

NARRATIVE: CASE EVENT DATE: 2014
